FAERS Safety Report 14162982 (Version 1)
Quarter: 2017Q4

REPORT INFORMATION
  Report Type: Spontaneous
  Country: FR (occurrence: FR)
  Receive Date: 20171106
  Receipt Date: 20171106
  Transmission Date: 20180321
  Serious: Yes (Hospitalization)
  Sender: FDA-Public Use
  Company Number: FR-PFIZER INC-2017468276

PATIENT
  Age: 57 Year
  Sex: Female

DRUGS (5)
  1. ARACYTINE [Suspect]
     Active Substance: CYTARABINE
     Dosage: 200 MG/M2, UNK (INDUCTION CHEMOTHERAPY)
     Dates: start: 20170706
  2. ARACYTINE [Suspect]
     Active Substance: CYTARABINE
     Dosage: 3 G/M2, CYCLIC (D1, 3, 5) (CONSOLIDATION)
     Dates: start: 20170814
  3. ARACYTINE [Suspect]
     Active Substance: CYTARABINE
     Indication: ACUTE MYELOID LEUKAEMIA
     Dosage: 3000 MG/M2, 2X/DAY
     Route: 042
     Dates: start: 20170706
  4. ARACYTINE [Suspect]
     Active Substance: CYTARABINE
     Dosage: 40 MG, UNK (INDUCTION CHEMOTHERAPY)
     Dates: start: 20170706
  5. ARACYTINE [Suspect]
     Active Substance: CYTARABINE
     Dosage: 3 G/M2 (CONSOLIDATION 2)
     Dates: start: 20170929

REACTIONS (1)
  - Cerebellar syndrome [Recovering/Resolving]

NARRATIVE: CASE EVENT DATE: 20171009
